FAERS Safety Report 6161088-3 (Version None)
Quarter: 2009Q2

REPORT INFORMATION
  Report Type: 
  Country: None (occurrence: None)
  Receive Date: 20090421
  Receipt Date: 20070316
  Transmission Date: 20091009
  Serious: Yes (Hospitalization, Disabling)
  Sender: FDA-Public Use
  Company Number: US-ASTRAZENECA-2006UW21035

PATIENT
  Age: 9697 Day
  Sex: Female
  Weight: 72.1 kg

DRUGS (12)
  1. SEROQUEL [Suspect]
     Indication: PSYCHOTIC DISORDER
     Dosage: 15MG-200MG
     Route: 048
     Dates: start: 20020416
  2. SEROQUEL [Suspect]
     Indication: DEPRESSION
     Dosage: 15MG-200MG
     Route: 048
     Dates: start: 20020416
  3. SEROQUEL [Suspect]
     Indication: INSOMNIA
     Dosage: 15MG-200MG
     Route: 048
     Dates: start: 20020416
  4. DILANTIN [Concomitant]
  5. GLUCOPHAGE [Concomitant]
  6. ALBUTEROL [Concomitant]
  7. LEXAPRO [Concomitant]
  8. WELLBUTRIN [Concomitant]
  9. CELEXA [Concomitant]
  10. GEODON [Concomitant]
  11. PAXIL [Concomitant]
  12. VISTARIL [Concomitant]

REACTIONS (9)
  - ABDOMINAL PAIN [None]
  - BACK PAIN [None]
  - DRUG TOXICITY [None]
  - ILL-DEFINED DISORDER [None]
  - OROPHARYNGEAL PAIN [None]
  - REFLUX GASTRITIS [None]
  - SEDATION [None]
  - STREPTOCOCCAL INFECTION [None]
  - VAGINAL INFECTION [None]
